FAERS Safety Report 24547916 (Version 2)
Quarter: 2025Q3

REPORT INFORMATION
  Report Type: Report from Study
  Country: CN (occurrence: CN)
  Receive Date: 20241025
  Receipt Date: 20250809
  Transmission Date: 20251021
  Serious: Yes (Other)
  Sender: ALEXION PHARMACEUTICALS
  Company Number: CN-AstraZeneca-2024-267036

PATIENT
  Age: 72 Year
  Sex: Female
  Weight: 48 kg

DRUGS (2)
  1. IRESSA [Suspect]
     Active Substance: GEFITINIB
  2. TAGRISSO [Suspect]
     Active Substance: OSIMERTINIB
     Indication: Lung neoplasm malignant
     Dosage: 1 DOSAGE FORM, QD
     Dates: start: 20230425

REACTIONS (9)
  - Choking [Unknown]
  - Disease progression [Unknown]
  - Lung opacity [Recovering/Resolving]
  - Mouth ulceration [Not Recovered/Not Resolved]
  - Diarrhoea [Recovered/Resolved]
  - Rash [Recovered/Resolved]
  - Drug resistance [Unknown]
  - Nausea [Recovered/Resolved]
  - Intentional dose omission [Recovered/Resolved]

NARRATIVE: CASE EVENT DATE: 20230601
